FAERS Safety Report 7989367-5 (Version None)
Quarter: 2011Q4

REPORT INFORMATION
  Report Type: 
  Country: None (occurrence: None)
  Receive Date: 20111219
  Receipt Date: 20111208
  Transmission Date: 20120403
  Serious: Yes (Other)
  Sender: FDA-Public Use
  Company Number: CN-JNJFOC-20111204894

PATIENT
  Age: 28 Year
  Sex: Male

DRUGS (2)
  1. REMICADE [Suspect]
     Indication: ANKYLOSING SPONDYLITIS
     Dosage: VD
     Route: 042
     Dates: start: 20111208, end: 20111208
  2. REMICADE [Suspect]
     Route: 042

REACTIONS (4)
  - DYSPNOEA [None]
  - FEELING ABNORMAL [None]
  - CONJUNCTIVAL HYPERAEMIA [None]
  - INFUSION RELATED REACTION [None]
